FAERS Safety Report 19369394 (Version 3)
Quarter: 2021Q4

REPORT INFORMATION
  Report Type: Report from Study
  Country: KR (occurrence: KR)
  Receive Date: 20210603
  Receipt Date: 20211115
  Transmission Date: 20220303
  Serious: Yes (Other)
  Sender: FDA-Public Use
  Company Number: KR-KYOWAKIRIN-2021AKK009271

PATIENT
  Age: 71 Year

DRUGS (4)
  1. FILGRASTIM [Suspect]
     Active Substance: FILGRASTIM
     Indication: Product used for unknown indication
     Dosage: UNK
     Route: 065
     Dates: start: 20090508, end: 20090508
  2. PEMETREXED [Concomitant]
     Active Substance: PEMETREXED
     Indication: Product used for unknown indication
     Dosage: 770 MILLIGRAM
     Dates: start: 20090428, end: 20090428
  3. DEXAMETHASONE [Concomitant]
     Active Substance: DEXAMETHASONE
     Indication: Product used for unknown indication
     Dosage: 4 MILLIGRAM
     Dates: start: 20090427, end: 20090429
  4. FOLIC ACID [Concomitant]
     Active Substance: FOLIC ACID
     Indication: Product used for unknown indication
     Dosage: 1 MILLIGRAM

REACTIONS (1)
  - Neutropenia [Recovered/Resolved]

NARRATIVE: CASE EVENT DATE: 20090508
